FAERS Safety Report 10847999 (Version 1)
Quarter: 2015Q1

REPORT INFORMATION
  Report Type: Report from Study
  Country: NL (occurrence: NL)
  Receive Date: 20150220
  Receipt Date: 20150220
  Transmission Date: 20150721
  Serious: Yes (Other)
  Sender: FDA-Public Use
  Company Number: NL-BIOMARINAP-NL-2015-105597

PATIENT
  Age: 13 Year
  Sex: Female
  Weight: 55 kg

DRUGS (3)
  1. CALCICHEW [Concomitant]
     Active Substance: CALCIUM CARBONATE
     Indication: PRODUCT USED FOR UNKNOWN INDICATION
  2. FORLAX                             /00754501/ [Concomitant]
     Active Substance: POLYETHYLENE GLYCOL 4000
     Indication: PRODUCT USED FOR UNKNOWN INDICATION
  3. NAGLAZYME [Suspect]
     Active Substance: GALSULFASE
     Indication: MUCOPOLYSACCHARIDOSIS VI
     Dosage: 55 MG, QW
     Route: 042
     Dates: start: 20080408

REACTIONS (1)
  - Cervical spinal stenosis [Not Recovered/Not Resolved]

NARRATIVE: CASE EVENT DATE: 20130709
